FAERS Safety Report 5456763-X (Version None)
Quarter: 2007Q3

REPORT INFORMATION
  Report Type: 
  Country: None (occurrence: None)
  Receive Date: 20070917
  Receipt Date: 20070917
  Transmission Date: 20080115
  Serious: Yes (Hospitalization)
  Sender: FDA-Public Use
  Company Number: None

PATIENT
  Sex: Male
  Weight: 86.2 kg

DRUGS (2)
  1. CYTARABINE [Suspect]
     Dosage: 18000 MCG
     Dates: end: 20051015
  2. G-CSF(FILGRASTIM, AMGEN) [Suspect]
     Dosage: 6240 MCG
     Dates: end: 20051028

REACTIONS (4)
  - CENTRAL LINE INFECTION [None]
  - DEEP VEIN THROMBOSIS [None]
  - DRUG TOXICITY [None]
  - PLATELET COUNT DECREASED [None]
